FAERS Safety Report 11133023 (Version 10)
Quarter: 2016Q1

REPORT INFORMATION
  Report Type: Spontaneous
  Country: US (occurrence: US)
  Receive Date: 20150522
  Receipt Date: 20160216
  Transmission Date: 20160525
  Serious: No
  Sender: FDA-Public Use
  Company Number: US-PFIZER INC-2015171652

PATIENT
  Age: 64 Year
  Sex: Female
  Weight: 74.83 kg

DRUGS (26)
  1. LYRICA [Suspect]
     Active Substance: PREGABALIN
     Dosage: 100 MG, 2X/DAY
     Route: 048
  2. LYRICA [Suspect]
     Active Substance: PREGABALIN
     Dosage: 350 MG, 2X/DAY
     Route: 048
  3. XANAX [Suspect]
     Active Substance: ALPRAZOLAM
     Indication: ANXIETY
     Dosage: 0.5 MG, 4X/DAY
  4. BUSPAR [Concomitant]
     Active Substance: BUSPIRONE HYDROCHLORIDE
     Indication: ANXIETY
     Dosage: 120 MG, DAILY
     Route: 048
  5. MELATONIN [Concomitant]
     Active Substance: MELATONIN
     Indication: SLEEP DISORDER
     Dosage: 10 MG, 1X/DAY( AT BEDTIME)
  6. RESVERATROL [Concomitant]
     Active Substance: RESVERATROL
     Indication: LUNG DISORDER
     Dosage: 250 MG, 1X/DAY
  7. ANORO ELLIPTA [Concomitant]
     Active Substance: UMECLIDINIUM BROMIDE\VILANTEROL TRIFENATATE
     Indication: CHRONIC OBSTRUCTIVE PULMONARY DISEASE
     Dosage: 1 DF, 1X/DAY(ONE PUFF ONCE DAILY)
     Route: 045
     Dates: start: 201510
  8. XANAX [Suspect]
     Active Substance: ALPRAZOLAM
     Indication: PANIC ATTACK
  9. CELEBREX [Suspect]
     Active Substance: CELECOXIB
     Indication: ARTHRITIS
     Dosage: 200 MG, 1X/DAY
  10. ALPRAZOLAM. [Concomitant]
     Active Substance: ALPRAZOLAM
     Indication: ANXIETY
     Dosage: 0.5 MG, 4X/DAY(OR MORE AS NEEDED)
     Route: 048
  11. RESVERATROL [Concomitant]
     Active Substance: RESVERATROL
     Indication: CARDIAC DISORDER
  12. VITAMIN D [Concomitant]
     Active Substance: CHOLECALCIFEROL
     Indication: VITAMIN D DEFICIENCY
     Dosage: 2000 IU, DAILY
     Dates: start: 2014
  13. BUSPAR [Concomitant]
     Active Substance: BUSPIRONE HYDROCHLORIDE
     Dosage: 30 MG, 4X/DAY
     Route: 048
  14. CITALOPRAM [Concomitant]
     Active Substance: CITALOPRAM HYDROBROMIDE
     Indication: BIPOLAR DISORDER
  15. LYRICA [Suspect]
     Active Substance: PREGABALIN
     Indication: SEIZURE
     Dosage: 50 MG, 2X/DAY
     Route: 048
     Dates: start: 201504
  16. LYRICA [Suspect]
     Active Substance: PREGABALIN
     Dosage: 75 MG, 2X/DAY
     Route: 048
  17. CELEBREX [Suspect]
     Active Substance: CELECOXIB
     Indication: ARTHRALGIA
  18. BUSPIRONE [Concomitant]
     Active Substance: BUSPIRONE HYDROCHLORIDE
     Indication: ANXIETY
     Dosage: 30 MG, 4X/DAY
  19. MAGNESIUM [Concomitant]
     Active Substance: MAGNESIUM
     Dosage: 400 MG, 1X/DAY
  20. CITALOPRAM [Concomitant]
     Active Substance: CITALOPRAM HYDROBROMIDE
     Indication: DEPRESSION
     Dosage: 40 MG, 1X/DAY
     Route: 048
  21. TURMERIC [Concomitant]
     Active Substance: TURMERIC
     Indication: ANTIINFLAMMATORY THERAPY
     Dosage: 500 MG, 2X/DAY
  22. LYRICA [Suspect]
     Active Substance: PREGABALIN
     Dosage: 150 MG, 2X/DAY(50 MG, THREE CAPSULES BY MOUTH TWICE DAILY)
     Route: 048
     Dates: start: 201506, end: 201601
  23. ECHINACEA [Concomitant]
     Active Substance: ECHINACEA, UNSPECIFIED
     Indication: NASOPHARYNGITIS
     Dosage: 1520 MG, 2X/DAY(760 MG TWO TWICE DAILY AS NEEDED)
  24. LYRICA [Suspect]
     Active Substance: PREGABALIN
     Indication: FIBROMYALGIA
     Dosage: 150 MG, 2X/DAY
     Route: 048
     Dates: start: 20150523
  25. LYRICA [Suspect]
     Active Substance: PREGABALIN
     Dosage: 300 MG, DAILY
     Route: 048
  26. LYRICA [Suspect]
     Active Substance: PREGABALIN
     Dosage: 150 MG (3X50 MG), 2X/DAY
     Route: 048

REACTIONS (24)
  - Therapeutic response unexpected [Not Recovered/Not Resolved]
  - Anxiety [Unknown]
  - Disease recurrence [Unknown]
  - Malaise [Unknown]
  - Condition aggravated [Unknown]
  - Depression [Unknown]
  - Pain [Not Recovered/Not Resolved]
  - Increased appetite [Unknown]
  - Feeling abnormal [Unknown]
  - Disturbance in attention [Not Recovered/Not Resolved]
  - Nuclear magnetic resonance imaging brain abnormal [Unknown]
  - Tobacco user [Not Recovered/Not Resolved]
  - Pre-existing condition improved [Not Recovered/Not Resolved]
  - Memory impairment [Not Recovered/Not Resolved]
  - Decreased appetite [Not Recovered/Not Resolved]
  - Panic attack [Unknown]
  - Weight decreased [Recovered/Resolved]
  - Bedridden [Unknown]
  - Weight increased [Unknown]
  - Tremor [Unknown]
  - Insomnia [Not Recovered/Not Resolved]
  - Drug ineffective [Unknown]
  - Nightmare [Not Recovered/Not Resolved]
  - Drug withdrawal syndrome [Unknown]

NARRATIVE: CASE EVENT DATE: 20150408
